FAERS Safety Report 9592558 (Version 1)
Quarter: 2013Q4

REPORT INFORMATION
  Report Type: Spontaneous
  Country: FR (occurrence: FR)
  Receive Date: 20131004
  Receipt Date: 20131004
  Transmission Date: 20140711
  Serious: Yes (Hospitalization)
  Sender: FDA-Public Use
  Company Number: FR-009507513-1309FRA011929

PATIENT
  Age: 60 Year
  Sex: Female

DRUGS (4)
  1. NORSET [Suspect]
     Dosage: 15 MG, TID
     Route: 048
  2. NEULEPTIL [Suspect]
     Dosage: 0.5 DF, BID
     Route: 048
  3. TERCIAN [Suspect]
     Dosage: 0.5 DF, QD
     Route: 048
  4. LEXOMIL ROCHE [Suspect]
     Dosage: 0.5 DF, TID
     Route: 048

REACTIONS (1)
  - Deep vein thrombosis [Recovered/Resolved]
